FAERS Safety Report 8154386-5 (Version None)
Quarter: 2012Q1

REPORT INFORMATION
  Report Type: 
  Country: None (occurrence: None)
  Receive Date: 20120103
  Receipt Date: 20111027
  Transmission Date: 20120608
  Serious: No
  Sender: FDA-Public Use
  Company Number: AE-2011-002804

PATIENT
  Age: 61 Year
  Sex: Male
  Weight: 89.3586 kg

DRUGS (5)
  1. PANTOPRAZOLE [Concomitant]
  2. INCIVEK [Suspect]
     Dosage: 2250 MG (750 MG, 3 IN 1 D), ORAL
     Route: 048
     Dates: start: 20110901
  3. PEGASYS [Concomitant]
  4. LISINOPRIL WITH HYDROCHLOROTHIAZIDE(PRINZIDE) [Concomitant]
  5. RIBAVIRIN [Concomitant]

REACTIONS (2)
  - ORAL HERPES [None]
  - ORAL DISORDER [None]
